FAERS Safety Report 5833936-5 (Version None)
Quarter: 2008Q3

REPORT INFORMATION
  Report Type: 
  Country: None (occurrence: None)
  Receive Date: 20080805
  Receipt Date: 20080804
  Transmission Date: 20090109
  Serious: Yes (Life-Threatening)
  Sender: FDA-Public Use
  Company Number: B0531727A

PATIENT
  Age: 24 Year
  Sex: Female
  Weight: 42 kg

DRUGS (16)
  1. FLOLAN [Suspect]
     Indication: PULMONARY ARTERIAL HYPERTENSION
     Route: 042
     Dates: start: 20060618
  2. WARFARIN POTASSIUM [Concomitant]
     Route: 048
  3. FUROSEMIDE [Concomitant]
     Route: 048
  4. FUROSEMIDE [Concomitant]
  5. NIFEDIPINE [Concomitant]
     Route: 048
  6. TRACLEER [Concomitant]
     Route: 048
  7. ACARDI [Concomitant]
     Route: 048
  8. UNKNOWN DRUG [Concomitant]
     Route: 042
  9. DOBUTREX [Concomitant]
     Route: 042
  10. CEFAMEZIN [Concomitant]
  11. ZANTAC [Concomitant]
  12. DIGOXIN [Concomitant]
     Route: 048
  13. ADONA (AC-17) [Concomitant]
  14. TRANSAMIN [Concomitant]
  15. VIAGRA [Concomitant]
     Route: 048
  16. DOBUTREX [Concomitant]
     Route: 042

REACTIONS (2)
  - HAEMOPTYSIS [None]
  - HYPOXIA [None]
